FAERS Safety Report 17323222 (Version 1)
Quarter: 2020Q1

REPORT INFORMATION
  Report Type: Spontaneous
  Country: US (occurrence: US)
  Receive Date: 20200108
  Receipt Date: 20200108
  Transmission Date: 20200409
  Serious: Yes (Death)
  Sender: FDA-Public Use
  Company Number: None

PATIENT
  Age: 67 Year
  Sex: Male
  Weight: 95 kg

DRUGS (2)
  1. NIVOLUMAB 240MG [Suspect]
     Active Substance: NIVOLUMAB
     Indication: SARCOMA
     Route: 042
     Dates: start: 20190710
  2. IPILIMUMAB 1MG/KG [Suspect]
     Active Substance: IPILIMUMAB
     Indication: SARCOMA
     Route: 042
     Dates: start: 20190710

REACTIONS (9)
  - Feeling cold [None]
  - Unresponsive to stimuli [None]
  - Apnoea [None]
  - Pulse absent [None]
  - Anaemia [None]
  - Hypotension [None]
  - Intra-abdominal haemorrhage [None]
  - Dizziness [None]
  - Respiratory distress [None]

NARRATIVE: CASE EVENT DATE: 20191218
